FAERS Safety Report 13721476 (Version 1)
Quarter: 2017Q3

REPORT INFORMATION
  Report Type: Spontaneous
  Country: US (occurrence: US)
  Receive Date: 20170706
  Receipt Date: 20170706
  Transmission Date: 20171127
  Serious: No
  Sender: FDA-Public Use
  Company Number: US-LUPIN PHARMACEUTICALS INC.-2017-01803

PATIENT
  Age: 17 Year
  Sex: Female
  Weight: 97.51 kg

DRUGS (3)
  1. DULOXETINE DELAYED-RELEASE CAPSULES 30 MG [Suspect]
     Active Substance: DULOXETINE HYDROCHLORIDE
     Indication: NEURALGIA
     Dosage: 60 MG, QD
     Route: 048
  2. DULOXETINE DELAYED-RELEASE CAPSULES 30 MG [Suspect]
     Active Substance: DULOXETINE HYDROCHLORIDE
     Dosage: 30 MG, QOD
     Route: 048
     Dates: end: 20170403
  3. DULOXETINE DELAYED-RELEASE CAPSULES 30 MG [Suspect]
     Active Substance: DULOXETINE HYDROCHLORIDE
     Dosage: 30 MG, QD
     Route: 048

REACTIONS (4)
  - Nausea [Not Recovered/Not Resolved]
  - Dizziness [Not Recovered/Not Resolved]
  - Headache [Not Recovered/Not Resolved]
  - Vomiting [Not Recovered/Not Resolved]

NARRATIVE: CASE EVENT DATE: 20170403
